FAERS Safety Report 15990147 (Version 2)
Quarter: 2019Q1

REPORT INFORMATION
  Report Type: Spontaneous
  Country: US (occurrence: US)
  Receive Date: 20190221
  Receipt Date: 20190228
  Transmission Date: 20190418
  Serious: Yes (Other)
  Sender: FDA-Public Use
  Company Number: US-ELI_LILLY_AND_COMPANY-US201902005218

PATIENT
  Sex: Female

DRUGS (2)
  1. CYMBALTA [Suspect]
     Active Substance: DULOXETINE HYDROCHLORIDE
     Indication: PAIN
     Dosage: UNK, UNKNOWN
     Route: 065
     Dates: start: 2009
  2. CYMBALTA [Suspect]
     Active Substance: DULOXETINE HYDROCHLORIDE
     Dosage: UNK UNK (DECREASED DOSE), UNKNOWN
     Route: 065
     Dates: start: 201702, end: 20190102

REACTIONS (29)
  - Laziness [Unknown]
  - Rash [Unknown]
  - Thinking abnormal [Recovering/Resolving]
  - Mania [Unknown]
  - Weight decreased [Unknown]
  - Rib fracture [Unknown]
  - Insomnia [Unknown]
  - Asthenia [Unknown]
  - Mesenteric panniculitis [Unknown]
  - Suicidal ideation [Recovered/Resolved]
  - Tooth loss [Unknown]
  - Confusional state [Unknown]
  - Bruxism [Unknown]
  - Dissociation [Recovering/Resolving]
  - Decreased interest [Recovering/Resolving]
  - Vomiting [Recovered/Resolved]
  - Alopecia [Unknown]
  - Paranoia [Unknown]
  - Mental disorder [Recovering/Resolving]
  - Irritability [Unknown]
  - Abdominal pain upper [Unknown]
  - Abulia [Recovering/Resolving]
  - Dysarthria [Unknown]
  - Feeling abnormal [Not Recovered/Not Resolved]
  - Anxiety [Unknown]
  - Constipation [Unknown]
  - Aphasia [Unknown]
  - Memory impairment [Unknown]
  - Weight increased [Unknown]

NARRATIVE: CASE EVENT DATE: 2017
